FAERS Safety Report 5796805-5 (Version None)
Quarter: 2008Q2

REPORT INFORMATION
  Report Type: 
  Country: None (occurrence: None)
  Receive Date: 20080630
  Receipt Date: 20080630
  Transmission Date: 20081010
  Serious: Yes (Hospitalization, Disabling, Other)
  Sender: FDA-Public Use
  Company Number: None

PATIENT
  Age: 53 Year
  Sex: Female
  Weight: 80.7403 kg

DRUGS (2)
  1. HUMIRA [Suspect]
     Indication: RHEUMATOID ARTHRITIS
     Dosage: 40MG TWICE A MONTH IM
     Route: 030
     Dates: start: 20070118, end: 20080428
  2. ENBREL [Suspect]
     Indication: RHEUMATOID ARTHRITIS
     Dosage: 50MG ONCE A WEEK IM
     Route: 030
     Dates: start: 20060501, end: 20061201

REACTIONS (4)
  - BALANCE DISORDER [None]
  - BLINDNESS [None]
  - HYPOAESTHESIA [None]
  - PARAESTHESIA [None]
